FAERS Safety Report 24194012 (Version 1)
Quarter: 2024Q3

REPORT INFORMATION
  Report Type: Spontaneous
  Country: US (occurrence: US)
  Receive Date: 20240809
  Receipt Date: 20240809
  Transmission Date: 20241016
  Serious: No
  Sender: BAYER
  Company Number: US-BAYER-2024A112407

PATIENT
  Age: 33 Year
  Sex: Female

DRUGS (2)
  1. MIRENA [Suspect]
     Active Substance: LEVONORGESTREL
     Indication: Abnormal uterine bleeding
     Dosage: 20?G/DAY
     Route: 015
     Dates: start: 202205
  2. MIRENA [Suspect]
     Active Substance: LEVONORGESTREL
     Indication: Vaginal haemorrhage

REACTIONS (2)
  - Genital haemorrhage [Not Recovered/Not Resolved]
  - Vaginal haemorrhage [Not Recovered/Not Resolved]
